FAERS Safety Report 9617609 (Version 2)
Quarter: 2013Q4

REPORT INFORMATION
  Report Type: Report from Study
  Country: US (occurrence: US)
  Receive Date: 20131011
  Receipt Date: 20131011
  Transmission Date: 20140711
  Serious: Yes (Other)
  Sender: FDA-Public Use
  Company Number: US-ABBVIE-13P-163-1119012-00

PATIENT
  Sex: Female
  Weight: 89.89 kg

DRUGS (4)
  1. HUMIRA [Suspect]
     Indication: RHEUMATOID ARTHRITIS
     Dosage: HELD 4 DOSES TOTAL
     Route: 058
     Dates: start: 20070828, end: 201304
  2. HUMIRA [Suspect]
     Dates: start: 201305
  3. METHOTREXATE [Concomitant]
     Indication: SERONEGATIVE ARTHRITIS
     Dosage: 6 TABLETS WEEKLY
     Route: 048
     Dates: start: 20070828
  4. CELEBREX [Concomitant]
     Dosage: 200MG DAILY
     Route: 048
     Dates: start: 20100315

REACTIONS (5)
  - Chondropathy [Recovering/Resolving]
  - Cartilage hypertrophy [Recovering/Resolving]
  - Sinusitis [Recovering/Resolving]
  - Ear infection [Recovering/Resolving]
  - Sinusitis [Recovering/Resolving]
